FAERS Safety Report 13489926 (Version 2)
Quarter: 2017Q2

REPORT INFORMATION
  Report Type: Spontaneous
  Country: IT (occurrence: IT)
  Receive Date: 20170426
  Receipt Date: 20170509
  Transmission Date: 20170830
  Serious: Yes (Hospitalization)
  Sender: FDA-Public Use
  Company Number: IT-AMGEN-ITASP2017063467

PATIENT
  Age: 68 Year
  Sex: Male

DRUGS (7)
  1. ENBREL [Suspect]
     Active Substance: ETANERCEPT
     Indication: RHEUMATOID ARTHRITIS
     Dosage: 50 MG, WEEKLY
     Route: 058
     Dates: start: 20160229, end: 20170315
  2. PANTOPRAZOLE [Concomitant]
     Active Substance: PANTOPRAZOLE
  3. CARDURA [Concomitant]
     Active Substance: DOXAZOSIN MESYLATE
  4. DIBASE [Concomitant]
     Active Substance: CHOLECALCIFEROL
  5. FOLINA [Concomitant]
     Active Substance: FOLIC ACID
  6. DELTACORTENE [Concomitant]
     Active Substance: PREDNISONE
  7. SALAZOPYRIN [Concomitant]
     Active Substance: SULFASALAZINE

REACTIONS (2)
  - Hypertensive crisis [Recovering/Resolving]
  - Tachycardia [Recovering/Resolving]

NARRATIVE: CASE EVENT DATE: 20170303
